FAERS Safety Report 4423958-3 (Version None)
Quarter: 2004Q3

REPORT INFORMATION
  Report Type: 
  Country: None (occurrence: None)
  Receive Date: 20040809
  Receipt Date: 20040729
  Transmission Date: 20050211
  Serious: Yes (Death)
  Sender: FDA-Public Use
  Company Number: 2004222246JP

PATIENT
  Age: 76 Year
  Sex: Male
  Weight: 47.6 kg

DRUGS (15)
  1. FARMORUBICIN RTU (EPIRUBICIN HYDROCHLORIDE) SOLUTION, STERILE [Suspect]
     Indication: HEPATIC NEOPLASM MALIGNANT
     Dosage: 10 MG, QD, INTRA-ARTERIAL
     Route: 013
     Dates: start: 20040611, end: 20040611
  2. SALIGREN (CEVIMELINE HYDROCHLORIDE HYDRATE) [Suspect]
     Indication: SJOGREN'S SYNDROME
     Dosage: 30 MG, BID, ORAL
     Route: 048
     Dates: start: 20040625, end: 20040703
  3. LIPIODOL ULTRA-FLUID (ETHIODIZED OIL) [Suspect]
     Indication: HEPATIC NEOPLASM MALIGNANT
     Dosage: 4 ML, QD, INTRA-ARTERIAL
     Route: 013
     Dates: start: 20040611, end: 20040611
  4. STRONG NEO-MINOPHAGEN C (CYSTEINE, AMINOACETIC ACID, GLYCYRRHIZIC ACID [Concomitant]
  5. TATHION (GLUTATHIONE) [Concomitant]
  6. BLOPRESS (CANDESARTAN CILEXETIL) [Concomitant]
  7. TENORMIN [Concomitant]
  8. ATELEC (CILNIDIPINE) [Concomitant]
  9. CARDENALIN [Concomitant]
  10. TAKEPRON [Concomitant]
  11. LOXONIN (LOXOPROFEN SODIUM) [Concomitant]
  12. CYTOTEC [Concomitant]
  13. MUCOSOLVAN [Concomitant]
  14. LENDORM [Concomitant]
  15. LIVACT [Concomitant]

REACTIONS (7)
  - BACTERIAL INFECTION [None]
  - C-REACTIVE PROTEIN INCREASED [None]
  - INFLAMMATION [None]
  - INTERSTITIAL LUNG DISEASE [None]
  - PLEURAL EFFUSION [None]
  - RESPIRATORY FAILURE [None]
  - SJOGREN'S SYNDROME [None]
